FAERS Safety Report 13070854 (Version 1)
Quarter: 2016Q4

REPORT INFORMATION
  Report Type: Spontaneous
  Country: ME (occurrence: ME)
  Receive Date: 20161229
  Receipt Date: 20161229
  Transmission Date: 20170207
  Serious: Yes (Other)
  Sender: FDA-Public Use
  Company Number: ME-ASTRAZENECA-2016SF36663

PATIENT
  Sex: Female
  Weight: 73 kg

DRUGS (1)
  1. CRESTOR [Suspect]
     Active Substance: ROSUVASTATIN CALCIUM
     Indication: HYPERLIPIDAEMIA
     Route: 048
     Dates: start: 201611

REACTIONS (2)
  - Haematemesis [Recovered/Resolved]
  - Abdominal pain [Recovered/Resolved]
